FAERS Safety Report 8184809-7 (Version None)
Quarter: 2012Q1

REPORT INFORMATION
  Report Type: 
  Country: None (occurrence: None)
  Receive Date: 20120305
  Receipt Date: 20120228
  Transmission Date: 20120608
  Serious: Yes (Death)
  Sender: FDA-Public Use
  Company Number: US-BAYER-2011-122730

PATIENT
  Age: 24 Year
  Sex: Female

DRUGS (2)
  1. NEXAVAR [Suspect]
     Indication: ACUTE MYELOID LEUKAEMIA
     Dosage: UNK
     Dates: start: 20111121, end: 20111206
  2. NEXAVAR [Suspect]
     Indication: GRAFT VERSUS HOST DISEASE

REACTIONS (4)
  - MALABSORPTION [None]
  - DIARRHOEA [None]
  - FATIGUE [None]
  - DEATH [None]
